FAERS Safety Report 26097818 (Version 1)
Quarter: 2025Q4

REPORT INFORMATION
  Report Type: Spontaneous
  Country: BR (occurrence: BR)
  Receive Date: 20251127
  Receipt Date: 20251127
  Transmission Date: 20260117
  Serious: Yes (Death)
  Sender: BOEHRINGER INGELHEIM
  Company Number: BR-BoehringerIngelheim-2025-BI-110385

PATIENT
  Age: 67 Year
  Sex: Female

DRUGS (1)
  1. NINTEDANIB [Suspect]
     Active Substance: NINTEDANIB
     Indication: Pulmonary fibrosis

REACTIONS (1)
  - Death [Fatal]
